FAERS Safety Report 6820459-X (Version None)
Quarter: 2010Q3

REPORT INFORMATION
  Report Type: 
  Country: None (occurrence: None)
  Receive Date: 20100707
  Receipt Date: 20100628
  Transmission Date: 20110219
  Serious: Yes (Other)
  Sender: FDA-Public Use
  Company Number: US-B.I. PHARMACEUTICALS,INC./RIDGEFIELD-2010-BP-06151BP

PATIENT
  Sex: Male

DRUGS (3)
  1. MOBIC [Suspect]
  2. VIOXX [Suspect]
     Indication: ARTHRITIS
  3. CELEBREX [Suspect]
     Indication: ARTHRITIS

REACTIONS (6)
  - DRUG INEFFECTIVE [None]
  - FEELING OF DESPAIR [None]
  - HYPOKINESIA [None]
  - IMPAIRED WORK ABILITY [None]
  - MENTAL DISORDER [None]
  - MUSCULOSKELETAL STIFFNESS [None]
